FAERS Safety Report 18389499 (Version 1)
Quarter: 2020Q4

REPORT INFORMATION
  Report Type: Spontaneous
  Country: NO (occurrence: NO)
  Receive Date: 20201015
  Receipt Date: 20201015
  Transmission Date: 20210114
  Serious: Yes (Hospitalization)
  Sender: FDA-Public Use
  Company Number: NO-INDIVIOR EUROPE LIMITED-INDV-126740-2020

PATIENT
  Age: 45 Year
  Sex: Female
  Weight: 68 kg

DRUGS (3)
  1. PARACETAMOL [Concomitant]
     Active Substance: ACETAMINOPHEN
     Indication: PROCEDURAL PAIN
     Dosage: UNK, AS NEEDED
     Route: 065
  2. ENOXAPARIN [Concomitant]
     Active Substance: ENOXAPARIN
     Indication: PRODUCT USED FOR UNKNOWN INDICATION
     Dosage: 40 MG PER DAY FOR FIRST THREE WEEKS
     Route: 058
  3. BUPRENORPHINE/NALOXONE TABLET [Suspect]
     Active Substance: BUPRENORPHINE HYDROCHLORIDE\NALOXONE HYDROCHLORIDE
     Indication: DRUG USE DISORDER
     Dosage: 20MILLIGRAM, QD
     Route: 065

REACTIONS (7)
  - Osteoarthritis [Not Recovered/Not Resolved]
  - Drug effect less than expected [Unknown]
  - Drug withdrawal syndrome [Unknown]
  - Weight increased [Recovered/Resolved]
  - Osteoporosis [Unknown]
  - Dyspepsia [Unknown]
  - Drug level decreased [Unknown]
